FAERS Safety Report 4350678-6 (Version None)
Quarter: 2004Q2

REPORT INFORMATION
  Report Type: 
  Country: None (occurrence: None)
  Receive Date: 20040429
  Receipt Date: 20040429
  Transmission Date: 20050107
  Serious: Yes (Life-Threatening, Hospitalization)
  Sender: FDA-Public Use
  Company Number: None

PATIENT
  Age: 56 Year
  Sex: Male
  Weight: 90 kg

DRUGS (3)
  1. CYCLOSPORINE [Suspect]
     Indication: BONE MARROW TRANSPLANT
     Dosage: VARIABLE DAILY INTRAVENOUS
     Route: 042
     Dates: start: 20040323, end: 20040423
  2. CYCLOSPORINE [Suspect]
     Indication: IMMUNOSUPPRESSION
     Dosage: VARIABLE DAILY INTRAVENOUS
     Route: 042
     Dates: start: 20040323, end: 20040423
  3. FLUDARABINE PHOSPHATE [Concomitant]

REACTIONS (4)
  - DRUG TOXICITY [None]
  - MENTAL STATUS CHANGES [None]
  - METABOLIC DISORDER [None]
  - NERVOUS SYSTEM DISORDER [None]
